FAERS Safety Report 4462997-3 (Version None)
Quarter: 2004Q3

REPORT INFORMATION
  Report Type: 
  Country: None (occurrence: None)
  Receive Date: 20040927
  Receipt Date: 20040910
  Transmission Date: 20050211
  Serious: Yes (Life-Threatening, Hospitalization)
  Sender: FDA-Public Use
  Company Number: 2004-BP-07053YA

PATIENT
  Age: 69 Year
  Sex: Male

DRUGS (4)
  1. HARNAL (TAMSULOSIN) (NR) [Suspect]
     Indication: BENIGN PROSTATIC HYPERPLASIA
     Dosage: 0.2MG; PO
     Route: 048
     Dates: start: 20040601, end: 20040807
  2. CHLORMADINONE ACETATE TAB [Suspect]
     Indication: BENIGN PROSTATIC HYPERPLASIA
     Dosage: 50 MG ( 25 MG BID); PO
     Route: 048
     Dates: start: 20040601, end: 20040807
  3. MELILOT (MELILOT) [Suspect]
     Indication: HAEMORRHOIDS
     Dosage: (2 DF TID), PO
     Route: 048
     Dates: start: 20040601, end: 20040807
  4. MELILOT (MELILOT) [Suspect]
     Indication: RECTAL PROLAPSE
     Dosage: (2 DF TID), PO
     Route: 048
     Dates: start: 20040601, end: 20040807

REACTIONS (5)
  - ALANINE AMINOTRANSFERASE INCREASED [None]
  - ASPARTATE AMINOTRANSFERASE INCREASED [None]
  - HAEMORRHOIDS [None]
  - JAUNDICE [None]
  - LIVER DISORDER [None]
